FAERS Safety Report 8296595-0 (Version None)
Quarter: 2012Q2

REPORT INFORMATION
  Report Type: 
  Country: None (occurrence: None)
  Receive Date: 20120418
  Receipt Date: 20120418
  Transmission Date: 20120825
  Serious: Yes (Other)
  Sender: FDA-Public Use
  Company Number: None

PATIENT
  Age: 55 Year
  Sex: Female
  Weight: 82 kg

DRUGS (16)
  1. AMPHETAMINE/D-AMPHETAMINE [Concomitant]
     Route: 048
  2. MORPHINE [Concomitant]
     Indication: PROCEDURAL PAIN
     Dosage: 30 MG
     Route: 048
     Dates: start: 20111109, end: 20111110
  3. MULTI-VITAMIN [Concomitant]
     Route: 048
  4. BUPROPION HCL [Concomitant]
     Route: 048
  5. FLUTICASONE FUROATE [Concomitant]
     Route: 045
  6. POLYETHYLENE GLYCO [Concomitant]
     Route: 048
  7. CHOLECALCIFEROL [Concomitant]
     Route: 048
  8. DOCUSATE CALCIUM [Concomitant]
     Route: 048
  9. MORPHINE [Suspect]
     Indication: PROCEDURAL PAIN
     Dosage: 60.0 MG
     Route: 048
     Dates: start: 20111109, end: 20111110
  10. PANTOPRAZOLE [Concomitant]
     Route: 048
  11. LOVAZA [Concomitant]
     Route: 048
  12. CALCIUM + VITAMIN D [Concomitant]
     Route: 048
  13. LORATADINE [Concomitant]
     Route: 048
  14. AMPHETAMINE/D-AMPHETAMINE [Concomitant]
     Route: 048
  15. ZIPRASIDONE HYDROCHLORIDE [Concomitant]
     Route: 048
  16. ASCORBIC ACID [Concomitant]
     Route: 048

REACTIONS (4)
  - TACHYCARDIA [None]
  - LETHARGY [None]
  - OVERDOSE [None]
  - OXYGEN SATURATION DECREASED [None]
